FAERS Safety Report 10622491 (Version 1)
Quarter: 2014Q4

REPORT INFORMATION
  Report Type: Spontaneous
  Country: PT (occurrence: PT)
  Receive Date: 20141203
  Receipt Date: 20141203
  Transmission Date: 20150529
  Serious: Yes (Other)
  Sender: FDA-Public Use
  Company Number: PT-ASTRAZENECA-2014SE90062

PATIENT
  Age: 12 Year
  Sex: Male

DRUGS (2)
  1. ROPIVACAINE [Suspect]
     Active Substance: ROPIVACAINE
     Indication: EPIDURAL ANAESTHESIA
     Route: 008
  2. ROPIVACAINE [Suspect]
     Active Substance: ROPIVACAINE
     Indication: EPIDURAL ANAESTHESIA
     Dosage: TWO BOLUS OF ROPIVACAINE 3.75 MG/ML
     Route: 008

REACTIONS (9)
  - Disorientation [Recovered/Resolved]
  - Hallucination [Recovered/Resolved]
  - Nystagmus [Recovered/Resolved]
  - Visual impairment [Recovered/Resolved]
  - Altered state of consciousness [Recovered/Resolved]
  - Hypertension [Recovered/Resolved]
  - Incorrect route of drug administration [Unknown]
  - Hyperhidrosis [Recovered/Resolved]
  - Vomiting [Recovered/Resolved]
